FAERS Safety Report 24792088 (Version 1)
Quarter: 2024Q4

REPORT INFORMATION
  Report Type: Spontaneous
  Country: CA (occurrence: CA)
  Receive Date: 20241231
  Receipt Date: 20241231
  Transmission Date: 20250115
  Serious: Yes (Hospitalization)
  Sender: CELLTRION
  Company Number: CA-PFIZER INC-PV202400169871

PATIENT

DRUGS (2)
  1. INFLECTRA [Suspect]
     Active Substance: INFLIXIMAB-DYYB
     Indication: Colitis ulcerative
     Dosage: 400 MG FREQUENCY: 6 WEEKS
     Route: 042
     Dates: start: 20130113
  2. INFLECTRA [Suspect]
     Active Substance: INFLIXIMAB-DYYB
     Dosage: 400 MG FREQUENCY: 6 WEEKS
     Route: 042
     Dates: start: 20231207

REACTIONS (3)
  - Brain abscess [Unknown]
  - Hydrocephalus [Unknown]
  - Colloid brain cyst [Unknown]

NARRATIVE: CASE EVENT DATE: 20240101
